FAERS Safety Report 9183100 (Version 1)
Quarter: 2012Q4

REPORT INFORMATION
  Report Type: 
  Country: CN (occurrence: CN)
  Receive Date: 20121030
  Receipt Date: 20121030
  Transmission Date: 20130627
  Serious: Yes (Other)
  Sender: FDA-Public Use
  Company Number: PHHY2012CN097053

PATIENT
  Age: 60 None
  Sex: Male
  Weight: 65 kg

DRUGS (2)
  1. TASIGNA [Suspect]
     Indication: CHRONIC MYELOID LEUKAEMIA
     Dosage: 400 mg, BID
     Route: 048
     Dates: start: 201205
  2. TASIGNA [Suspect]
     Dosage: 400 mg, BID
     Route: 048
     Dates: end: 20120730

REACTIONS (10)
  - Increased upper airway secretion [Recovered/Resolved]
  - Pancreatitis acute [Recovered/Resolved]
  - Abdominal pain [Recovered/Resolved]
  - Lipase increased [Recovered/Resolved]
  - Blood bilirubin increased [Recovered/Resolved]
  - Transaminases increased [Recovered/Resolved]
  - Dysuria [Recovered/Resolved]
  - Micturition urgency [Recovered/Resolved]
  - Flatulence [Recovered/Resolved]
  - Rash generalised [Recovered/Resolved]
